FAERS Safety Report 8233024-7 (Version None)
Quarter: 2012Q1

REPORT INFORMATION
  Report Type: 
  Country: None (occurrence: None)
  Receive Date: 20120326
  Receipt Date: 20120314
  Transmission Date: 20120608
  Serious: Yes (Hospitalization)
  Sender: FDA-Public Use
  Company Number: US-BIOGENIDEC-2010BI041185

PATIENT
  Sex: Male

DRUGS (28)
  1. AVONEX [Suspect]
     Indication: MULTIPLE SCLEROSIS
     Route: 030
     Dates: start: 19960504, end: 19970101
  2. EXCEDRIN EXTRA STRENGTH TABLETS [Concomitant]
  3. MULTI-VITAMIN [Concomitant]
  4. LOVAZA [Concomitant]
  5. VITAMIN B-12 [Concomitant]
  6. SIMVASTATIN [Concomitant]
  7. FLUTICASONE PROPIONATE [Concomitant]
     Route: 006
  8. OXYBUTYNIN CHLORIDE [Concomitant]
  9. GABAPENTIN [Concomitant]
  10. AVONEX [Suspect]
     Route: 030
     Dates: start: 20030101, end: 20110601
  11. VITAMIN D [Concomitant]
  12. TYLENOL [Concomitant]
  13. FEXOFENADINE HCL [Concomitant]
  14. LIDODERM [Concomitant]
     Route: 061
  15. EPIPEN [Concomitant]
  16. HYDROCODONE BITARTRATE AND ACETAMINOPHEN [Concomitant]
  17. ALPRAZOLAM [Concomitant]
  18. CYCLOBENZRAPINE HCL [Concomitant]
  19. LEXAPRO [Concomitant]
  20. NAPROXEN (ALEVE) [Concomitant]
  21. PERCOCET [Concomitant]
  22. SUPER B COMPLEX [Concomitant]
  23. CYANOCOBALAMIN [Concomitant]
     Route: 030
  24. DOXAZOSIN MESYLATE [Concomitant]
  25. VALIUM [Concomitant]
  26. AVONEX [Suspect]
     Route: 030
     Dates: start: 19970101, end: 20030101
  27. LORATADINE [Concomitant]
  28. UNKNOWN MEDICATION [Concomitant]

REACTIONS (4)
  - ARTHRITIS [None]
  - ARTHROPATHY [None]
  - INTERVERTEBRAL DISC DEGENERATION [None]
  - MULTIPLE SCLEROSIS RELAPSE [None]
